FAERS Safety Report 6833625-4 (Version None)
Quarter: 2010Q3

REPORT INFORMATION
  Report Type: 
  Country: None (occurrence: None)
  Receive Date: 20100712
  Receipt Date: 20070329
  Transmission Date: 20110219
  Serious: No
  Sender: FDA-Public Use
  Company Number: US-PFIZER INC-2007026764

PATIENT
  Sex: Female
  Weight: 62.6 kg

DRUGS (4)
  1. CHANTIX [Suspect]
     Indication: SMOKING CESSATION THERAPY
     Dates: start: 20070301, end: 20070301
  2. ALL OTHER THERAPEUTIC PRODUCTS [Concomitant]
  3. TUMS [Concomitant]
  4. AMOXICILLIN [Concomitant]

REACTIONS (1)
  - GASTRIC DISORDER [None]
